FAERS Safety Report 18297678 (Version 1)
Quarter: 2020Q3

REPORT INFORMATION
  Report Type: Spontaneous
  Country: US (occurrence: US)
  Receive Date: 20200922
  Receipt Date: 20200922
  Transmission Date: 20201103
  Serious: No
  Sender: FDA-Public Use
  Company Number: US-AMNEAL PHARMACEUTICALS-2020-AMRX-02609

PATIENT
  Sex: Female

DRUGS (2)
  1. AZELASTINE HYDROCHLORIDE. [Suspect]
     Active Substance: AZELASTINE HYDROCHLORIDE
     Dosage: INSTILLED 2 SPRAYS, TWO TIMES EVERY DAY IN EACH NOSTRIL
     Route: 045
     Dates: start: 20200819
  2. AZELASTINE HYDROCHLORIDE. [Suspect]
     Active Substance: AZELASTINE HYDROCHLORIDE
     Indication: PRODUCT USED FOR UNKNOWN INDICATION
     Dosage: INSTILLED 2 SPRAYS, TWO TIMES EVERY DAY IN EACH NOSTRIL
     Route: 045
     Dates: start: 20200819

REACTIONS (3)
  - Product odour abnormal [Unknown]
  - Therapeutic product effect incomplete [Unknown]
  - Dysgeusia [Unknown]

NARRATIVE: CASE EVENT DATE: 20200819
